FAERS Safety Report 12436775 (Version 1)
Quarter: 2016Q2

REPORT INFORMATION
  Report Type: Spontaneous
  Country: US (occurrence: None)
  Receive Date: 20160603
  Receipt Date: 20160603
  Transmission Date: 20160815
  Serious: Yes (Other)
  Sender: FDA-Public Use
  Company Number: None

PATIENT
  Age: 71 Year
  Sex: Male
  Weight: 95.26 kg

DRUGS (1)
  1. REMICADE [Suspect]
     Active Substance: INFLIXIMAB
     Indication: RHEUMATOID ARTHRITIS
     Dosage: ONCE EVERY 6 WEEKS INFUSION

REACTIONS (4)
  - Condition aggravated [None]
  - Fatigue [None]
  - Product quality issue [None]
  - Flushing [None]

NARRATIVE: CASE EVENT DATE: 20160419
